FAERS Safety Report 9188275 (Version 2)
Quarter: 2013Q2

REPORT INFORMATION
  Report Type: Spontaneous
  Country: DE (occurrence: DE)
  Receive Date: 20130325
  Receipt Date: 20130422
  Transmission Date: 20140414
  Serious: Yes (Other)
  Sender: FDA-Public Use
  Company Number: DE-SANOFI-AVENTIS-2013SA029889

PATIENT
  Age: 73 Year
  Sex: Male
  Weight: 68 kg

DRUGS (6)
  1. MULTAQ [Suspect]
     Indication: ARRHYTHMIA
     Route: 048
     Dates: start: 201112
  2. VERAPAMIL [Concomitant]
     Dosage: STRUCTURE DOSE: 120
  3. LOSARTAN [Concomitant]
  4. MARCUMAR [Concomitant]
     Route: 065
  5. FORMOTEROL HEMIFUMARATE [Concomitant]
  6. BUDESONIDE [Concomitant]

REACTIONS (4)
  - Syncope [Recovering/Resolving]
  - Peripheral vascular disorder [Recovering/Resolving]
  - Blood pressure fluctuation [Recovering/Resolving]
  - Dizziness [Recovering/Resolving]
